FAERS Safety Report 4816245-2 (Version None)
Quarter: 2005Q4

REPORT INFORMATION
  Report Type: 
  Country: None (occurrence: None)
  Receive Date: 20051028
  Receipt Date: 20051019
  Transmission Date: 20060501
  Serious: No
  Sender: FDA-Public Use
  Company Number: 05H-093-0303248-00

PATIENT
  Age: 75 Year
  Sex: Female

DRUGS (2)
  1. HEPARIN SODIUM INJECTION [Suspect]
     Indication: ANTICOAGULANT THERAPY
     Dosage: 1500 IU, EVERY 2 HOURS
  2. HEPARIN SODIUM INJECTION [Suspect]
     Indication: ANTICOAGULANT THERAPY
     Dosage: 30000 IU, ONCE, INTRAVENOUS BOLUS
     Route: 040

REACTIONS (8)
  - ARTERIAL THROMBOSIS [None]
  - COMPARTMENT SYNDROME [None]
  - FINGER AMPUTATION [None]
  - HEPARIN-INDUCED THROMBOCYTOPENIA [None]
  - NECROSIS [None]
  - PERIPHERAL ISCHAEMIA [None]
  - POST PROCEDURAL COMPLICATION [None]
  - VENOUS THROMBOSIS [None]
